FAERS Safety Report 6754695-8 (Version None)
Quarter: 2010Q2

REPORT INFORMATION
  Report Type: 
  Country: None (occurrence: None)
  Receive Date: 20100603
  Receipt Date: 20100525
  Transmission Date: 20101027
  Serious: Yes (Disabling, Other)
  Sender: FDA-Public Use
  Company Number: US-PFIZER INC-2009205470

PATIENT
  Sex: Male
  Weight: 82 kg

DRUGS (3)
  1. LIPITOR [Suspect]
     Indication: BLOOD CHOLESTEROL INCREASED
     Dosage: 40 MG, 1X/DAY
     Route: 048
  2. PAROXETINE [Concomitant]
     Dosage: UNK
  3. ACETYLSALICYLIC ACID [Concomitant]
     Dosage: UNK

REACTIONS (11)
  - ABASIA [None]
  - APHASIA [None]
  - BLADDER CANCER [None]
  - CYSTITIS [None]
  - GAIT DISTURBANCE [None]
  - HEMIPLEGIA [None]
  - KIDNEY INFECTION [None]
  - MUSCLE RIGIDITY [None]
  - MUSCULAR WEAKNESS [None]
  - MYALGIA [None]
  - UNEVALUABLE EVENT [None]
